FAERS Safety Report 20764431 (Version 3)
Quarter: 2022Q2

REPORT INFORMATION
  Report Type: Report from Study
  Country: IT (occurrence: None)
  Receive Date: 20220428
  Receipt Date: 20220603
  Transmission Date: 20220721
  Serious: Yes (Death, Hospitalization)
  Sender: FDA-Public Use
  Company Number: IT-ROCHE-3080212

PATIENT
  Age: 87 Year
  Sex: Male

DRUGS (21)
  1. RITUXIMAB [Suspect]
     Active Substance: RITUXIMAB
     Indication: Diffuse large B-cell lymphoma
     Route: 042
     Dates: start: 20220308, end: 20220329
  2. RITUXIMAB [Suspect]
     Active Substance: RITUXIMAB
     Indication: Diffuse large B-cell lymphoma
     Route: 058
     Dates: start: 20220308, end: 20220329
  3. POLATUZUMAB VEDOTIN [Suspect]
     Active Substance: POLATUZUMAB VEDOTIN
     Indication: Diffuse large B-cell lymphoma
     Route: 065
     Dates: start: 20220309, end: 20220329
  4. CYCLOPHOSPHAMIDE [Suspect]
     Active Substance: CYCLOPHOSPHAMIDE
     Indication: Diffuse large B-cell lymphoma
     Route: 065
     Dates: start: 20220309, end: 20220329
  5. DOXORUBICIN [Suspect]
     Active Substance: DOXORUBICIN
     Indication: Diffuse large B-cell lymphoma
     Route: 065
     Dates: start: 20220309, end: 20220329
  6. PREDNISONE [Suspect]
     Active Substance: PREDNISONE
     Indication: Diffuse large B-cell lymphoma
     Route: 065
     Dates: start: 20220309, end: 20220329
  7. VINCRISTINE [Suspect]
     Active Substance: VINCRISTINE
     Indication: Diffuse large B-cell lymphoma
     Route: 065
     Dates: start: 20220309, end: 20220329
  8. PREDNISONE [Concomitant]
     Active Substance: PREDNISONE
     Dates: start: 20220310, end: 20220312
  9. PREDNISONE [Concomitant]
     Active Substance: PREDNISONE
     Dates: start: 20220330, end: 20220402
  10. LANSOPRAZOLE [Concomitant]
     Active Substance: LANSOPRAZOLE
     Dosage: 30 MG/DIE
     Dates: start: 20220301
  11. VALACYCLOVIR HYDROCHLORIDE [Concomitant]
     Active Substance: VALACYCLOVIR HYDROCHLORIDE
     Dosage: 500 MG/DIE
     Dates: start: 20220301
  12. BACTRIM [Concomitant]
     Active Substance: SULFAMETHOXAZOLE\TRIMETHOPRIM
     Indication: Antibiotic therapy
     Dates: start: 20220301
  13. CHOLECALCIFEROL [Concomitant]
     Active Substance: CHOLECALCIFEROL
     Indication: Osteoporosis
  14. CALCIUM CARBONATE [Concomitant]
     Active Substance: CALCIUM CARBONATE
     Indication: Osteoporosis
     Dates: start: 20220301, end: 20220310
  15. ASPIRIN [Concomitant]
     Active Substance: ASPIRIN
     Dosage: 100 MG/DIIE
     Dates: start: 20220216
  16. QUINAPRIL [Concomitant]
     Active Substance: QUINAPRIL
     Indication: Hypertension
     Dosage: 16 MG/DIE
     Dates: start: 20220216
  17. ALLOPURINOL [Concomitant]
     Active Substance: ALLOPURINOL
     Dosage: 300 MG/DIE
     Dates: start: 20220216
  18. FONDAPARINUX [Concomitant]
     Active Substance: FONDAPARINUX
     Indication: Deep vein thrombosis
     Dosage: 7.5 MG/DIE
     Dates: start: 20220328
  19. ERYTHROPOIETIN [Concomitant]
     Active Substance: ERYTHROPOIETIN
     Dates: start: 20220328
  20. FILGRASTIM [Concomitant]
     Active Substance: FILGRASTIM
     Dosage: 30 MUIVIDS
     Dates: start: 20220331, end: 20220404
  21. FILGRASTIM [Concomitant]
     Active Substance: FILGRASTIM
     Dosage: 30 MUVID
     Dates: start: 20220310, end: 20220313

REACTIONS (1)
  - Cerebral haemorrhage [Fatal]

NARRATIVE: CASE EVENT DATE: 20220412
